FAERS Safety Report 21628267 (Version 7)
Quarter: 2023Q1

REPORT INFORMATION
  Report Type: Report from Study
  Country: US (occurrence: US)
  Receive Date: 20221122
  Receipt Date: 20230131
  Transmission Date: 20230418
  Serious: Yes (Hospitalization, Other)
  Sender: FDA-Public Use
  Company Number: US-UCBSA-2022059497

PATIENT
  Age: 52 Year
  Sex: Female
  Weight: 73.4 kg

DRUGS (1)
  1. FINTEPLA [Suspect]
     Active Substance: FENFLURAMINE
     Indication: Product used for unknown indication
     Dosage: 5.9 MILLILITER, 2X/DAY (BID)
     Dates: start: 20220219, end: 20220610

REACTIONS (19)
  - Craniotomy [Unknown]
  - Neuroprosthesis implantation [Unknown]
  - Echocardiogram abnormal [Not Recovered/Not Resolved]
  - Aortic valve thickening [Not Recovered/Not Resolved]
  - Mitral valve incompetence [Not Recovered/Not Resolved]
  - Tricuspid valve incompetence [Not Recovered/Not Resolved]
  - Aortic valve sclerosis [Not Recovered/Not Resolved]
  - Seizure [Unknown]
  - Fall [Unknown]
  - Ill-defined disorder [Not Recovered/Not Resolved]
  - Aortic aneurysm [Unknown]
  - Headache [Unknown]
  - Circulatory collapse [Unknown]
  - Movement disorder [Unknown]
  - Dizziness [Unknown]
  - Vomiting [Unknown]
  - Therapeutic product ineffective [Unknown]
  - Stress [Unknown]
  - Confusional state [Unknown]

NARRATIVE: CASE EVENT DATE: 20220326
